FAERS Safety Report 9899176 (Version 2)
Quarter: 2014Q1

REPORT INFORMATION
  Report Type: Spontaneous
  Country: US (occurrence: US)
  Receive Date: 20140214
  Receipt Date: 20140214
  Transmission Date: 20141002
  Serious: No
  Sender: FDA-Public Use
  Company Number: US-GILEAD-2011-0046142

PATIENT
  Age: 82 Year
  Sex: Female

DRUGS (15)
  1. LETAIRIS [Suspect]
     Indication: PULMONARY HYPERTENSION
     Dosage: 5 MG, UNK
     Route: 048
     Dates: start: 20110908, end: 20111031
  2. HYDROCHLOROTHIAZIDE W/LOSARTAN [Concomitant]
  3. PREDNISONE [Concomitant]
  4. ALPRAZOLAM [Concomitant]
  5. OMEPRAZOLE [Concomitant]
  6. CHOLECALCIFEROL [Concomitant]
  7. CARVEDILOL [Concomitant]
  8. ASPIRIN [Concomitant]
  9. IRON [Concomitant]
  10. VENTAVIS [Concomitant]
  11. OPTIVITE FOR WOMEN [Concomitant]
  12. VITAMIN C                          /00008001/ [Concomitant]
  13. CALCIUM [Concomitant]
  14. INFLUENZA VACCINE [Concomitant]
  15. PNEUMOCOCCAL VACCINE [Concomitant]

REACTIONS (2)
  - Malaise [Unknown]
  - Dyspnoea [Not Recovered/Not Resolved]
